FAERS Safety Report 10420297 (Version 1)
Quarter: 2014Q3

REPORT INFORMATION
  Report Type: Spontaneous
  Country: US (occurrence: None)
  Receive Date: 20140701
  Receipt Date: 20140701
  Transmission Date: 20150326
  Serious: No
  Sender: FDA-Public Use
  Company Number: 1000067030

PATIENT
  Age: 80 Year
  Sex: Male

DRUGS (5)
  1. STOOL SOFTENER (DOCUSATE SODIUM) (DOCUSATE SODIUM) [Concomitant]
  2. VYTORIN (INEGY) (INEGY) [Concomitant]
  3. PLAVIX [Concomitant]
     Active Substance: CLOPIDOGREL BISULFATE
  4. GLYBURIDE (GLIBENCLAMIDE) (GLIBENCLAMIDE) [Concomitant]
  5. LINZESS [Suspect]
     Active Substance: LINACLOTIDE
     Indication: CONSTIPATION
     Dosage: 290MCG (290 MCG, 1 IN 1 D), ORAL
     Route: 048
     Dates: start: 201308

REACTIONS (1)
  - Abdominal pain [None]

NARRATIVE: CASE EVENT DATE: 2013
